FAERS Safety Report 8645091 (Version 2)
Quarter: 2012Q4

REPORT INFORMATION
  Report Type: 
  Country: JP (occurrence: JP)
  Receive Date: 20120702
  Receipt Date: 20121129
  Transmission Date: 20130627
  Serious: Yes (Death, Other)
  Sender: FDA-Public Use
  Company Number: PHHY2012JP055843

PATIENT
  Age: 73 Year
  Sex: Male
  Weight: 77 kg

DRUGS (20)
  1. ICL670A [Suspect]
     Indication: IRON OVERLOAD
     Dosage: 500 mg, daily
     Route: 048
     Dates: start: 20110224, end: 20110616
  2. SLOW-K [Concomitant]
     Dosage: 1200 mg, UNK
     Route: 048
     Dates: start: 20110309, end: 20110616
  3. PRIMOBOLAN [Concomitant]
     Indication: MYELODYSPLASTIC SYNDROME
     Dosage: 20 mg, UNK
     Route: 048
     Dates: start: 20110121, end: 20110324
  4. GLAKAY [Concomitant]
     Indication: MYELODYSPLASTIC SYNDROME
     Dosage: 45 mg, UNK
     Route: 048
     Dates: start: 20110121, end: 20110317
  5. ALFAROL [Concomitant]
     Dosage: 1 ug, UNK
     Route: 048
     Dates: start: 20110121, end: 20110317
  6. MUCOSOLVAN [Concomitant]
     Dosage: 45 mg, UNK
     Route: 048
     Dates: start: 20101217, end: 20110116
  7. NAIXAN [Concomitant]
     Dosage: 400 mg, UNK
     Route: 048
     Dates: start: 20110128, end: 20110616
  8. TAKEPRON [Concomitant]
     Dosage: 15 mg, UNK
     Route: 048
     Dates: start: 20100223, end: 20110616
  9. MAGLAX [Concomitant]
     Dosage: 1980 mg, UNK
     Route: 050
     Dates: start: 20101205, end: 20110616
  10. MAXIPIME [Concomitant]
     Indication: PROPHYLAXIS
     Dosage: 2 g, UNK
     Dates: start: 20110202, end: 20110224
  11. ISOTONIC SOLUTIONS [Concomitant]
     Indication: PROPHYLAXIS
     Dosage: 200 l, UNK
     Dates: start: 20110202, end: 20110228
  12. CEFEPIME HYDROCHLORIDE [Concomitant]
     Indication: PROPHYLAXIS
     Dosage: 2 g, UNK
     Dates: start: 20110225, end: 20110228
  13. BROCIN-CODEINE [Concomitant]
     Dosage: 6 ml, UNK
     Route: 048
     Dates: start: 20101207, end: 20110616
  14. AMOBAN [Concomitant]
     Dosage: UNK UKN, UNK
     Route: 048
     Dates: start: 20110303, end: 20110305
  15. ITRIZOLE [Concomitant]
     Indication: MYELODYSPLASTIC SYNDROME
     Dosage: 20 ml, UNK
     Route: 048
     Dates: start: 20110319, end: 20110326
  16. ITRIZOLE [Concomitant]
     Dosage: 100 mg, UNK
     Route: 048
     Dates: start: 20110421, end: 20110616
  17. MOHRUS [Concomitant]
     Indication: MYELODYSPLASTIC SYNDROME
     Dosage: UNK UKN, UNK
     Dates: start: 20110319, end: 20110326
  18. BROTIZOLAM [Concomitant]
     Dosage: UNK UKN, UNK
     Route: 048
     Dates: start: 20110323
  19. PREDONINE [Concomitant]
     Indication: MYELODYSPLASTIC SYNDROME
     Dosage: 5 mg, UNK
     Route: 048
     Dates: start: 20110421, end: 20110616
  20. ADONA [Concomitant]
     Indication: MYELODYSPLASTIC SYNDROME
     Dosage: 90 mg, UNK
     Route: 048
     Dates: start: 20110512

REACTIONS (9)
  - Lung neoplasm malignant [Fatal]
  - Condition aggravated [Fatal]
  - Pleural effusion [Fatal]
  - Respiratory distress [Fatal]
  - Malaise [Fatal]
  - Hypophagia [Fatal]
  - Pneumonia [Recovered/Resolved]
  - Heart rate decreased [Not Recovered/Not Resolved]
  - Decreased appetite [Not Recovered/Not Resolved]
